FAERS Safety Report 8615756-1 (Version None)
Quarter: 2012Q3

REPORT INFORMATION
  Report Type: 
  Country: None (occurrence: None)
  Receive Date: 20120823
  Receipt Date: 20120816
  Transmission Date: 20120928
  Serious: Yes (Death, Life-Threatening)
  Sender: FDA-Public Use
  Company Number: CN-ASTRAZENECA-2012SE60642

PATIENT
  Age: 5138 Day
  Sex: Male
  Weight: 55 kg

DRUGS (2)
  1. BUDESONIDE [Suspect]
     Indication: LARYNGITIS
     Route: 055
  2. TERBUTALINE SULFATE [Suspect]
     Indication: LARYNGITIS
     Route: 055
     Dates: start: 20110110, end: 20110110

REACTIONS (3)
  - HEART RATE DECREASED [None]
  - RESPIRATORY ARREST [None]
  - BRAIN DEATH [None]
